FAERS Safety Report 6425679-4 (Version None)
Quarter: 2009Q4

REPORT INFORMATION
  Report Type: 
  Country: None (occurrence: None)
  Receive Date: 20091029
  Receipt Date: 20091023
  Transmission Date: 20100525
  Serious: No
  Sender: FDA-Public Use
  Company Number: 413766

PATIENT
  Age: 59 Year
  Sex: Female

DRUGS (5)
  1. OXALIPLATIN [Suspect]
     Indication: COLON CANCER
     Dosage: 130 MG, 1 DAY, INTRAVENOUS
     Route: 042
     Dates: start: 20091020, end: 20091020
  2. LEUCOVORIN CALCIUM [Concomitant]
  3. (5-FU /00098801/) [Concomitant]
  4. DECADRON [Concomitant]
  5. ALOXI [Concomitant]

REACTIONS (4)
  - DRUG HYPERSENSITIVITY [None]
  - ERYTHEMA [None]
  - PRURITUS [None]
  - THROAT TIGHTNESS [None]
